FAERS Safety Report 4946327-6 (Version None)
Quarter: 2006Q1

REPORT INFORMATION
  Report Type: 
  Country: None (occurrence: None)
  Receive Date: 20060317
  Receipt Date: 20050726
  Transmission Date: 20060701
  Serious: Yes (Hospitalization)
  Sender: FDA-Public Use
  Company Number: HQWYE568227JUL05

PATIENT
  Sex: Female

DRUGS (6)
  1. ENBREL [Suspect]
     Indication: RHEUMATOID ARTHRITIS
     Route: 058
     Dates: start: 20050707, end: 20050727
  2. AURANOFIN [Concomitant]
     Indication: RHEUMATOID ARTHRITIS
     Route: 065
     Dates: start: 20040501
  3. METHOTREXATE [Concomitant]
     Route: 065
     Dates: start: 19890101, end: 20050725
  4. PREDNISOLONE [Concomitant]
     Route: 065
     Dates: start: 19890101
  5. LORNOXICAM [Concomitant]
     Route: 065
  6. PERSANTIN [Concomitant]
     Route: 065

REACTIONS (3)
  - MIDDLE LOBE SYNDROME [None]
  - PLEURISY [None]
  - PNEUMONIA [None]
